FAERS Safety Report 16174748 (Version 2)
Quarter: 2019Q2

REPORT INFORMATION
  Report Type: Spontaneous
  Country: US (occurrence: US)
  Receive Date: 20190409
  Receipt Date: 20190417
  Transmission Date: 20190711
  Serious: Yes (Hospitalization)
  Sender: FDA-Public Use
  Company Number: US-PFIZER INC-2019147270

PATIENT
  Age: 14 Year
  Sex: Female

DRUGS (1)
  1. VERAPAMIL HCL [Suspect]
     Active Substance: VERAPAMIL HYDROCHLORIDE
     Dosage: 15-20 EXTENDED RELEASE 240 MG TABLETS
     Route: 048

REACTIONS (11)
  - Bradycardia [Recovered/Resolved]
  - Acute respiratory distress syndrome [Recovering/Resolving]
  - Lactic acidosis [Unknown]
  - Electrocardiogram QT prolonged [Unknown]
  - Cardiac arrest [Recovered/Resolved]
  - Atrioventricular block [Recovered/Resolved]
  - Hyperglycaemia [Unknown]
  - Hypotension [Recovered/Resolved]
  - Pulmonary oedema [Recovering/Resolving]
  - Electrocardiogram QRS complex prolonged [Unknown]
  - Intentional overdose [Unknown]
